FAERS Safety Report 7739587-X (Version None)
Quarter: 2011Q3

REPORT INFORMATION
  Report Type: 
  Country: None (occurrence: None)
  Receive Date: 20110909
  Receipt Date: 20110127
  Transmission Date: 20111222
  Serious: No
  Sender: FDA-Public Use
  Company Number: US-BAYER-2011-012396

PATIENT
  Age: 25 Year
  Sex: Female
  Weight: 67.12 kg

DRUGS (2)
  1. MIRENA [Suspect]
     Indication: CONTRACEPTION
     Dosage: UNK
     Route: 015
     Dates: start: 20090801, end: 20101227
  2. PLAN B [Concomitant]
     Indication: POST COITAL CONTRACEPTION

REACTIONS (4)
  - VAGINAL HAEMORRHAGE [None]
  - ABDOMINAL PAIN [None]
  - AMENORRHOEA [None]
  - VOMITING [None]
